FAERS Safety Report 24650901 (Version 1)
Quarter: 2024Q4

REPORT INFORMATION
  Report Type: Spontaneous
  Country: US (occurrence: US)
  Receive Date: 20241122
  Receipt Date: 20241122
  Transmission Date: 20250115
  Serious: Yes (Other)
  Sender: AMGEN
  Company Number: US-AMGEN-USASP2024227375

PATIENT
  Age: 56 Year
  Sex: Female

DRUGS (1)
  1. PROLIA [Suspect]
     Active Substance: DENOSUMAB
     Indication: Product used for unknown indication
     Dosage: UNK, Q6MO
     Route: 065
     Dates: start: 201903, end: 202303

REACTIONS (2)
  - Spinal fracture [Not Recovered/Not Resolved]
  - Dental care [Not Recovered/Not Resolved]

NARRATIVE: CASE EVENT DATE: 20231001
